FAERS Safety Report 9087507 (Version 4)
Quarter: 2014Q2

REPORT INFORMATION
  Report Type: Report from Study
  Country: US (occurrence: US)
  Receive Date: 20130131
  Receipt Date: 20140401
  Transmission Date: 20141212
  Serious: Yes (Death)
  Sender: FDA-Public Use
  Company Number: US-ALEXION PHARMACEUTICALS INC.-A201300133

PATIENT
  Age: 50 Year
  Sex: Female
  Weight: 80 kg

DRUGS (9)
  1. SOLIRIS [Suspect]
     Indication: HAEMOLYTIC URAEMIC SYNDROME
     Dosage: 900 MG, SINGLE
     Route: 042
     Dates: start: 20130619, end: 20130619
  2. SOLIRIS [Suspect]
     Dosage: UNK
  3. CEFTRIAXONE [Concomitant]
  4. COLACE [Concomitant]
  5. PEPCID [Concomitant]
  6. KEPPRA [Concomitant]
  7. TOPROL [Concomitant]
  8. MULTIVITAMIN [Concomitant]
  9. DIOVAN [Concomitant]

REACTIONS (1)
  - Arrhythmia [Fatal]
